FAERS Safety Report 11273485 (Version 2)
Quarter: 2015Q3

REPORT INFORMATION
  Report Type: Spontaneous
  Country: US (occurrence: US)
  Receive Date: 20150715
  Receipt Date: 20150902
  Transmission Date: 20151125
  Serious: No
  Sender: FDA-Public Use
  Company Number: US-HORIZON-RAV-0042-2015

PATIENT
  Age: 28 Year
  Sex: Female

DRUGS (14)
  1. ZONEGRAM [Concomitant]
  2. POTASSIUM [Concomitant]
     Active Substance: POTASSIUM
  3. METOCLOPRAMIDE. [Concomitant]
     Active Substance: METOCLOPRAMIDE
  4. MIRALAX [Concomitant]
     Active Substance: POLYETHYLENE GLYCOL 3350
  5. KEPPRA [Concomitant]
     Active Substance: LEVETIRACETAM
  6. ALLEGRA [Concomitant]
     Active Substance: FEXOFENADINE HYDROCHLORIDE
  7. OMEPRAZOLE. [Concomitant]
     Active Substance: OMEPRAZOLE
  8. PROVIGIL [Concomitant]
     Active Substance: MODAFINIL
  9. CLONAZEPAM. [Concomitant]
     Active Substance: CLONAZEPAM
  10. CLONIDINE. [Concomitant]
     Active Substance: CLONIDINE
  11. L-CITRULLINE [Concomitant]
     Active Substance: CITRULLINE
  12. TRILEPTAL [Concomitant]
     Active Substance: OXCARBAZEPINE
  13. IRON [Concomitant]
     Active Substance: IRON
  14. RAVICTI [Suspect]
     Active Substance: GLYCEROL PHENYLBUTYRATE
     Indication: ORNITHINE TRANSCARBAMOYLASE DEFICIENCY

REACTIONS (2)
  - Product use issue [Unknown]
  - Device material issue [Unknown]
